FAERS Safety Report 12867361 (Version 1)
Quarter: 2016Q4

REPORT INFORMATION
  Report Type: Spontaneous
  Country: GB (occurrence: GB)
  Receive Date: 20161020
  Receipt Date: 20161020
  Transmission Date: 20170207
  Serious: Yes (Disabling)
  Sender: FDA-Public Use
  Company Number: GB-TEVA-703322ACC

PATIENT
  Age: 40 Year
  Sex: Female
  Weight: 51.71 kg

DRUGS (7)
  1. CLONAZEPAM. [Suspect]
     Active Substance: CLONAZEPAM
     Dosage: 250MCG IN THE MORNING AND 500MCG IN THE EVENING
     Route: 048
     Dates: start: 20141223
  2. CLONAZEPAM. [Suspect]
     Active Substance: CLONAZEPAM
     Dosage: 500 MICROGRAM DAILY;
     Route: 048
     Dates: start: 20150620
  3. TRIHEXYPHENIDYL [Concomitant]
     Active Substance: TRIHEXYPHENIDYL
     Dates: start: 20141111, end: 20160126
  4. CLONAZEPAM. [Suspect]
     Active Substance: CLONAZEPAM
     Indication: DYSTONIA
     Dosage: 1000 MICROGRAM DAILY;
     Route: 048
     Dates: start: 20141111, end: 20141223
  5. CLONAZEPAM. [Suspect]
     Active Substance: CLONAZEPAM
     Dosage: 250 MICROGRAMS (MCG) / 375 MICROGRAMS
     Route: 048
     Dates: start: 20150529
  6. CLONAZEPAM. [Suspect]
     Active Substance: CLONAZEPAM
     Dosage: 29/07/2016 125 MICROGRAMS (MCG) TWICE DAILY?19/08/2015 125 MCG AT NIGHT
     Route: 048
     Dates: start: 20150729, end: 20150904
  7. CLONAZEPAM. [Suspect]
     Active Substance: CLONAZEPAM
     Dosage: 125 MICROGRAMS (MCG) / 250 MCG
     Route: 048
     Dates: start: 20150711

REACTIONS (21)
  - Muscle twitching [Recovering/Resolving]
  - Headache [Recovered/Resolved]
  - Hypoaesthesia [Recovering/Resolving]
  - Mood altered [Recovered/Resolved]
  - Anger [Recovering/Resolving]
  - Abnormal loss of weight [Recovered/Resolved with Sequelae]
  - Depressed mood [Recovered/Resolved]
  - Paraesthesia [Recovering/Resolving]
  - Decreased appetite [Recovered/Resolved]
  - Tearfulness [Recovering/Resolving]
  - Tremor [Recovering/Resolving]
  - Vomiting [Recovering/Resolving]
  - Photophobia [Recovering/Resolving]
  - Restlessness [Recovered/Resolved]
  - Emotional poverty [Recovering/Resolving]
  - Pain in extremity [Recovered/Resolved]
  - Cognitive disorder [Recovered/Resolved]
  - Insomnia [Recovered/Resolved]
  - Withdrawal syndrome [Recovering/Resolving]
  - Formication [Recovering/Resolving]
  - Nausea [Recovering/Resolving]

NARRATIVE: CASE EVENT DATE: 201411
